FAERS Safety Report 13418764 (Version 2)
Quarter: 2018Q2

REPORT INFORMATION
  Report Type: Report from Study
  Country: US (occurrence: US)
  Receive Date: 20170406
  Receipt Date: 20180402
  Transmission Date: 20180711
  Serious: Yes (Hospitalization)
  Sender: FDA-Public Use
  Company Number: US-BIOGEN-2017BI00384036

PATIENT
  Age: 72 Year
  Sex: Female

DRUGS (2)
  1. TECFIDERA [Suspect]
     Active Substance: DIMETHYL FUMARATE
     Indication: MULTIPLE SCLEROSIS
     Dosage: MAINTENANCE DOSE
     Route: 048
     Dates: start: 20131210
  2. TECFIDERA [Suspect]
     Active Substance: DIMETHYL FUMARATE
     Dosage: MAINTENANCE DOSE
     Route: 048
     Dates: start: 20161004

REACTIONS (3)
  - Urticaria [Unknown]
  - Blood blister [Unknown]
  - Acute myocardial infarction [Unknown]

NARRATIVE: CASE EVENT DATE: 201703
